FAERS Safety Report 7500554-2 (Version None)
Quarter: 2011Q2

REPORT INFORMATION
  Report Type: 
  Country: None (occurrence: None)
  Receive Date: 20110524
  Receipt Date: 20110517
  Transmission Date: 20111010
  Serious: No
  Sender: FDA-Public Use
  Company Number: US-PFIZER INC-2011107857

PATIENT
  Sex: Female
  Weight: 67.12 kg

DRUGS (2)
  1. CENTRUM [Suspect]
     Indication: VITAMIN SUPPLEMENTATION
     Dosage: DAILY
     Route: 048
     Dates: start: 20110512
  2. XANAX [Suspect]
     Indication: NERVOUSNESS
     Dosage: UNK
     Route: 048

REACTIONS (2)
  - FEELING ABNORMAL [None]
  - DIZZINESS [None]
